FAERS Safety Report 7093925-2 (Version None)
Quarter: 2010Q4

REPORT INFORMATION
  Report Type: 
  Country: None (occurrence: None)
  Receive Date: 20101110
  Receipt Date: 20101029
  Transmission Date: 20110411
  Serious: Yes (Life-Threatening, Hospitalization, Other)
  Sender: FDA-Public Use
  Company Number: JP-PFIZER INC-2010129742

PATIENT
  Age: 45 Year
  Sex: Female
  Weight: 51 kg

DRUGS (7)
  1. AZULFIDINE [Suspect]
     Indication: SERONEGATIVE ARTHRITIS
     Dosage: 500 MG, 1X/DAY
     Route: 048
     Dates: start: 20100401, end: 20100413
  2. AZULFIDINE [Suspect]
     Dosage: 250 MG, 1X/DAY
     Route: 048
     Dates: start: 20100427, end: 20100427
  3. CELECOXIB [Suspect]
     Indication: SERONEGATIVE ARTHRITIS
     Dosage: 200 MG, 2X/DAY
     Route: 048
     Dates: start: 20100401, end: 20100413
  4. PARIET [Suspect]
     Dosage: 10 MG, 1X/DAY
     Route: 048
     Dates: start: 20100426, end: 20100427
  5. SELBEX [Concomitant]
     Dosage: 100 MG, 2X/DAY
     Route: 048
     Dates: start: 20100401, end: 20100413
  6. GASTER [Concomitant]
     Dosage: 10 MG, 2X/DAY
     Route: 048
     Dates: start: 20100401, end: 20100413
  7. VOLTAREN [Concomitant]
     Dosage: 75 MG, 2X/DAY
     Route: 048
     Dates: start: 20100426

REACTIONS (3)
  - ANAPHYLACTIC SHOCK [None]
  - DRUG ERUPTION [None]
  - LYMPHOCYTE STIMULATION TEST POSITIVE [None]
